FAERS Safety Report 7703861-3 (Version None)
Quarter: 2011Q3

REPORT INFORMATION
  Report Type: 
  Country: None (occurrence: None)
  Receive Date: 20110823
  Receipt Date: 20110620
  Transmission Date: 20111222
  Serious: Yes (Hospitalization, Other)
  Sender: FDA-Public Use
  Company Number: US-BAYER-201036204NA

PATIENT
  Age: 15 Year
  Sex: Female
  Weight: 91 kg

DRUGS (9)
  1. ALLEGRA D 24 HOUR [Concomitant]
     Indication: MULTIPLE ALLERGIES
     Dosage: UNK
     Dates: start: 20040101, end: 20060101
  2. SINGULAIR [Concomitant]
     Indication: ASTHMA
     Dosage: UNK
     Dates: start: 20050101
  3. ALBUTEROL SULFATE AUTOHALER [Concomitant]
     Indication: ASTHMA
     Dosage: UNK
     Dates: start: 19990101
  4. YASMIN [Suspect]
     Indication: PRODUCT USED FOR UNKNOWN INDICATION
     Dosage: UNK
     Route: 048
     Dates: start: 20050301, end: 20080901
  5. DROSPIRENONE AND ETHINYL ESTRADIOL [Suspect]
     Indication: PRODUCT USED FOR UNKNOWN INDICATION
  6. RESPIRATORY SYSTEM [Concomitant]
     Indication: MULTIPLE ALLERGIES
     Dosage: UNK
     Dates: start: 20060101
  7. AZITHROMYCIN [Concomitant]
     Dosage: 250 MG, UNK
     Dates: start: 20060719
  8. CITALOPRAM HYDROBROMIDE [Concomitant]
     Dosage: 10 MG, UNK
     Dates: start: 20041130, end: 20060716
  9. PREVACID [Concomitant]
     Dosage: 30 MG, QD

REACTIONS (4)
  - GALLBLADDER DISORDER [None]
  - CHOLECYSTITIS CHRONIC [None]
  - ABDOMINAL PAIN [None]
  - CHOLELITHIASIS [None]
